FAERS Safety Report 22399553 (Version 4)
Quarter: 2024Q4

REPORT INFORMATION
  Report Type: Report from Study
  Country: US (occurrence: US)
  Receive Date: 20230602
  Receipt Date: 20241008
  Transmission Date: 20250114
  Serious: Yes (Hospitalization)
  Sender: PFIZER
  Company Number: US-PFIZER INC-PV202300096583

PATIENT
  Age: 27 Year
  Sex: Male
  Weight: 134.1 kg

DRUGS (37)
  1. CYTARABINE [Suspect]
     Active Substance: CYTARABINE
     Indication: Acute myeloid leukaemia
     Dosage: 5100 MG
     Route: 042
     Dates: start: 20230224, end: 20230228
  2. CYTARABINE [Suspect]
     Active Substance: CYTARABINE
     Indication: Myelodysplastic syndrome
  3. SENACNAGENE ENFALEUCEL [Suspect]
     Active Substance: SENACNAGENE ENFALEUCEL
     Indication: Acute myeloid leukaemia
     Dosage: 1.5X10 9 CELLS
     Route: 042
     Dates: start: 20230302
  4. SENACNAGENE ENFALEUCEL [Suspect]
     Active Substance: SENACNAGENE ENFALEUCEL
     Indication: Myelodysplastic syndrome
  5. FLUDARABINE [Suspect]
     Active Substance: FLUDARABINE PHOSPHATE
     Indication: Myelodysplastic syndrome
     Dosage: 75 MG
     Route: 042
     Dates: start: 20230223, end: 20230227
  6. FLUDARABINE [Suspect]
     Active Substance: FLUDARABINE PHOSPHATE
     Indication: Acute myeloid leukaemia
  7. CETIRIZINE [Concomitant]
     Active Substance: CETIRIZINE HYDROCHLORIDE
     Indication: Seasonal allergy
     Dosage: 10 MG, 1X/DAY
     Route: 048
     Dates: start: 202212
  8. ACYCLOVIR [Concomitant]
     Active Substance: ACYCLOVIR
     Indication: Antiviral prophylaxis
     Dosage: 400 MG, 2X/DAY
     Route: 048
     Dates: start: 20230123
  9. LEVOFLOXACIN [Concomitant]
     Active Substance: LEVOFLOXACIN
     Indication: Antibiotic prophylaxis
     Dosage: 500 MG, 1X/DAY
     Route: 048
     Dates: start: 202206
  10. BACLOFEN [Concomitant]
     Active Substance: BACLOFEN
     Indication: Hiccups
     Dosage: 5 MG, AS NEEDED
     Route: 048
     Dates: start: 202212
  11. DOCUSATE SODIUM [Concomitant]
     Active Substance: DOCUSATE SODIUM
     Indication: Constipation
     Dosage: 100 MG, AS NEEDED
     Route: 048
     Dates: start: 202207
  12. SENOSIDE [Concomitant]
     Indication: Constipation
     Dosage: 8.6 MG, AS NEEDED
     Route: 048
     Dates: start: 202211
  13. ONDANSETRON [Concomitant]
     Active Substance: ONDANSETRON
     Indication: Nausea
     Dosage: 8 MG, AS NEEDED
     Route: 060
     Dates: start: 202206
  14. ONDANSETRON [Concomitant]
     Active Substance: ONDANSETRON
     Dosage: 8 MG, 1 TOTAL
     Route: 042
     Dates: start: 20230222, end: 20230222
  15. NORCO [Concomitant]
     Active Substance: ACETAMINOPHEN\HYDROCODONE BITARTRATE
     Indication: Cancer pain
     Dosage: 1 DF, [HYDROCODONE BITARTRATE 10]/[PARACETAMOL 325] AS NEEDED
     Route: 048
     Dates: start: 202210
  16. FLUCONAZOLE [Concomitant]
     Active Substance: FLUCONAZOLE
     Indication: Antifungal prophylaxis
     Dosage: 400 MG, 1X/DAY
     Route: 048
     Dates: start: 202206, end: 20230303
  17. TAMSULOSIN [Concomitant]
     Active Substance: TAMSULOSIN
     Indication: Urinary retention
     Dosage: 0.4 MG, AS NEEDED
     Route: 048
     Dates: start: 202206
  18. MORPHINE [Concomitant]
     Active Substance: MORPHINE
     Indication: Cancer pain
     Dosage: 15 MG, AS NEEDED
     Route: 048
     Dates: start: 202206
  19. FLONASE [Concomitant]
     Active Substance: FLUTICASONE PROPIONATE
     Indication: Seasonal allergy
     Dosage: 50 UG, AS NEEDED
     Route: 045
     Dates: start: 2021
  20. ALLOPURINOL [Concomitant]
     Active Substance: ALLOPURINOL
     Indication: Hyperuricaemia
     Dosage: 300 MG, 2X/DAY
     Route: 048
     Dates: start: 20230223
  21. DECADRON (DEXAMETHASONE SODIUM PHOSPHATE) [Concomitant]
     Active Substance: DEXAMETHASONE SODIUM PHOSPHATE
     Indication: Chemotherapy side effect prophylaxis
     Dosage: 12 MG, 1X/DAY
     Route: 048
     Dates: start: 20230223, end: 20230223
  22. DECADRON (DEXAMETHASONE SODIUM PHOSPHATE) [Concomitant]
     Active Substance: DEXAMETHASONE SODIUM PHOSPHATE
     Indication: Prophylaxis of nausea and vomiting
  23. PLATELETS [Concomitant]
     Active Substance: HUMAN PLATELET, ALLOGENIC
     Indication: Acute myeloid leukaemia
     Dosage: 1 IU, SINGLE
     Route: 042
     Dates: start: 20230217, end: 20230217
  24. PLATELETS [Concomitant]
     Active Substance: HUMAN PLATELET, ALLOGENIC
     Dosage: 1 IU, SINGLE
     Route: 042
     Dates: start: 20230222, end: 20230222
  25. PLATELETS [Concomitant]
     Active Substance: HUMAN PLATELET, ALLOGENIC
     Dosage: 1 IU, SINGLE
     Route: 042
     Dates: start: 20230306, end: 20230306
  26. PLATELETS [Concomitant]
     Active Substance: HUMAN PLATELET, ALLOGENIC
     Dosage: 1 IU, SINGLE
     Route: 042
     Dates: start: 20230309, end: 20230309
  27. PLATELETS [Concomitant]
     Active Substance: HUMAN PLATELET, ALLOGENIC
     Dosage: 1 IU, SINGLE
     Route: 042
     Dates: start: 20230314, end: 20230314
  28. PLATELETS [Concomitant]
     Active Substance: HUMAN PLATELET, ALLOGENIC
     Dosage: 1 IU, SINGLE
     Route: 042
     Dates: start: 20230317, end: 20230317
  29. HUMAN RED BLOOD CELL [Concomitant]
     Active Substance: HUMAN RED BLOOD CELL
     Indication: Acute myeloid leukaemia
     Dosage: 1 IU, SINGLE
     Route: 042
     Dates: start: 20230306, end: 20230306
  30. HUMAN RED BLOOD CELL [Concomitant]
     Active Substance: HUMAN RED BLOOD CELL
     Dosage: 2 IU, SINGLE
     Route: 042
     Dates: start: 20230310, end: 20230310
  31. HUMAN RED BLOOD CELL [Concomitant]
     Active Substance: HUMAN RED BLOOD CELL
     Dosage: 1 IU, SINGLE
     Route: 042
     Dates: start: 20230314, end: 20230314
  32. HUMAN RED BLOOD CELL [Concomitant]
     Active Substance: HUMAN RED BLOOD CELL
     Dosage: 1 IU, SINGLE
     Route: 042
     Dates: start: 20230315, end: 20230315
  33. HUMAN RED BLOOD CELL [Concomitant]
     Active Substance: HUMAN RED BLOOD CELL
     Dosage: 1 IU, SINGLE
     Route: 042
     Dates: start: 20230316, end: 20230316
  34. DIPHENHYDRAMINE [Concomitant]
     Active Substance: DIPHENHYDRAMINE
     Indication: Prophylaxis
     Dosage: 25 MG, SINGLE
     Route: 048
     Dates: start: 20230306, end: 20230306
  35. DIPHENHYDRAMINE [Concomitant]
     Active Substance: DIPHENHYDRAMINE
     Dosage: 25 MG, SINGLE
     Route: 048
     Dates: start: 20230316, end: 20230316
  36. SODIUM CHLORIDE [Concomitant]
     Active Substance: SODIUM CHLORIDE
     Dosage: UNK, SINGLE
     Route: 042
     Dates: start: 20230309, end: 20230309
  37. SODIUM CHLORIDE [Concomitant]
     Active Substance: SODIUM CHLORIDE
     Dosage: 1000 ML, SINGLE
     Route: 042
     Dates: start: 20230316, end: 20230316

REACTIONS (2)
  - Febrile neutropenia [Recovered/Resolved]
  - Febrile neutropenia [Recovered/Resolved]

NARRATIVE: CASE EVENT DATE: 20230309
